FAERS Safety Report 4775287-6 (Version None)
Quarter: 2005Q3

REPORT INFORMATION
  Report Type: 
  Country: None (occurrence: None)
  Receive Date: 20050921
  Receipt Date: 20050921
  Transmission Date: 20060218
  Serious: No
  Sender: FDA-Public Use
  Company Number: None

PATIENT
  Sex: Male
  Weight: 51.2565 kg

DRUGS (2)
  1. SEROQUEL [Suspect]
     Indication: BIPOLAR I DISORDER
     Dosage: 300 MG BID
     Dates: start: 20040525, end: 20050919
  2. ZOLOFT [Suspect]
     Dosage: 150 MG QD
     Dates: start: 20050411

REACTIONS (5)
  - BENIGN INTRACRANIAL HYPERTENSION [None]
  - DIZZINESS [None]
  - LUMBAR PUNCTURE ABNORMAL [None]
  - PAPILLOEDEMA [None]
  - VISION BLURRED [None]
